FAERS Safety Report 10818227 (Version 3)
Quarter: 2016Q3

REPORT INFORMATION
  Report Type: Spontaneous
  Country: US (occurrence: US)
  Receive Date: 20150218
  Receipt Date: 20160721
  Transmission Date: 20161109
  Serious: Yes (Other)
  Sender: FDA-Public Use
  Company Number: US-PFIZER INC-2015058793

PATIENT
  Age: 65 Year
  Sex: Female
  Weight: 87.98 kg

DRUGS (16)
  1. BACLOFEN. [Concomitant]
     Active Substance: BACLOFEN
     Indication: MUSCLE SPASMS
     Dosage: 20 MG, 3X/DAY
     Dates: start: 201411
  2. METHYLPHENIDATE. [Concomitant]
     Active Substance: METHYLPHENIDATE
     Indication: FATIGUE
  3. VALPROIC ACID. [Concomitant]
     Active Substance: VALPROIC ACID
     Indication: HEADACHE
     Dosage: 250 MG, AS NEEDED
  4. BACLOFEN. [Concomitant]
     Active Substance: BACLOFEN
     Indication: PAIN
     Dosage: 20 MG, 1X/DAY (ONCE AT NIGHT)
  5. CLARITIN [Concomitant]
     Active Substance: LORATADINE
     Indication: HYPERSENSITIVITY
  6. BUPROPION HCL ER [Concomitant]
     Active Substance: BUPROPION HYDROCHLORIDE
     Indication: INSOMNIA
  7. METHYLPHENIDATE. [Concomitant]
     Active Substance: METHYLPHENIDATE
     Indication: DISTURBANCE IN ATTENTION
     Dosage: 10 MG, 1X/DAY
     Dates: start: 201406
  8. DIAZEPAM. [Concomitant]
     Active Substance: DIAZEPAM
     Dosage: 5 MG, 2X/DAY
     Route: 048
     Dates: start: 2011
  9. SUMATRIPTAN SUCCINATE. [Concomitant]
     Active Substance: SUMATRIPTAN SUCCINATE
     Indication: MIGRAINE
     Dosage: 50 MG, AS NEEDED (1 OR 2 TABLETS AS NEEDED)
     Dates: start: 201409
  10. PRISTIQ EXTENDED-RELEASE [Suspect]
     Active Substance: DESVENLAFAXINE SUCCINATE
     Indication: MAJOR DEPRESSION
     Dosage: 50 MG, DAILY
     Route: 048
  11. PRISTIQ EXTENDED-RELEASE [Suspect]
     Active Substance: DESVENLAFAXINE SUCCINATE
     Indication: CRYING
     Dosage: 100 MG, 1X/DAY
     Route: 048
     Dates: start: 201001
  12. MAGNESIUM [Concomitant]
     Active Substance: MAGNESIUM
     Dosage: 800 MG, DAILY
     Route: 048
  13. METHYLPHENIDATE. [Concomitant]
     Active Substance: METHYLPHENIDATE
     Indication: SOMNOLENCE
  14. BUPROPION HCL ER [Concomitant]
     Active Substance: BUPROPION HYDROCHLORIDE
     Indication: ENERGY INCREASED
     Dosage: 100 MG, 1X/DAY, (ONCE A DAY IN MORNING)
     Dates: start: 2009
  15. WELLBUTRIN [Concomitant]
     Active Substance: BUPROPION HYDROCHLORIDE
     Indication: DISTURBANCE IN ATTENTION
     Dosage: UNK
  16. CLARITIN [Concomitant]
     Active Substance: LORATADINE
     Indication: ASTHMA
     Dosage: 10 MG TABLET ONE EVERY TWO WEEKS
     Dates: start: 2008

REACTIONS (8)
  - Optic nerve injury [Unknown]
  - Hallucination [Unknown]
  - Pain in extremity [Not Recovered/Not Resolved]
  - Fall [Unknown]
  - Concussion [Unknown]
  - Loss of consciousness [Unknown]
  - Blood glucose decreased [Unknown]
  - Brain injury [Recovering/Resolving]

NARRATIVE: CASE EVENT DATE: 2013
